FAERS Safety Report 12491351 (Version 2)
Quarter: 2016Q3

REPORT INFORMATION
  Report Type: Report from Study
  Country: US (occurrence: US)
  Receive Date: 20160623
  Receipt Date: 20160711
  Transmission Date: 20161109
  Serious: Yes (Hospitalization)
  Sender: FDA-Public Use
  Company Number: US-HORIZON-HPN-100-014-0027-2016

PATIENT
  Age: 25 Year
  Sex: Male

DRUGS (2)
  1. L-ARGININE [Concomitant]
     Active Substance: ARGININE
     Indication: ARGININOSUCCINATE LYASE DEFICIENCY
     Dosage: 18000 MG, QD
     Dates: start: 20120712
  2. SODIUM PHENYLBUTYRATE. [Suspect]
     Active Substance: SODIUM PHENYLBUTYRATE
     Indication: ORNITHINE TRANSCARBAMOYLASE DEFICIENCY
     Dosage: 12.5 G QD
     Dates: start: 201010

REACTIONS (1)
  - Device occlusion [Recovered/Resolved]

NARRATIVE: CASE EVENT DATE: 20151229
